FAERS Safety Report 13627378 (Version 1)
Quarter: 2017Q2

REPORT INFORMATION
  Report Type: Spontaneous
  Country: FR (occurrence: FR)
  Receive Date: 20170608
  Receipt Date: 20170608
  Transmission Date: 20170830
  Serious: Yes (Hospitalization, Other)
  Sender: FDA-Public Use
  Company Number: FR-PFIZER INC-2017240802

PATIENT
  Age: 57 Year
  Sex: Male

DRUGS (9)
  1. ADRIBLASTINE [Suspect]
     Active Substance: DOXORUBICIN
     Dosage: 200 MG/M2, CYCLIC (4 CYCLES)
     Route: 042
     Dates: start: 2014, end: 201506
  2. JANUVIA [Concomitant]
     Active Substance: SITAGLIPTIN PHOSPHATE
     Dosage: 50 MG, 2X/DAY
  3. METFORMIN [Concomitant]
     Active Substance: METFORMIN HYDROCHLORIDE
     Dosage: 1000 MG, UNK
     Dates: start: 20170203
  4. LASILIX /00032601/ [Concomitant]
     Active Substance: FUROSEMIDE
     Dosage: 40 MG, 2X/DAY
  5. DACARBAZINE. [Suspect]
     Active Substance: DACARBAZINE
     Dosage: UNK
     Route: 042
     Dates: start: 2014, end: 201506
  6. BISOPROLOL [Concomitant]
     Active Substance: BISOPROLOL
     Dosage: 2.5 MG, 1X/DAY
  7. BLEOMYCIN [Suspect]
     Active Substance: BLEOMYCIN SULFATE
     Dosage: UNK UNK, CYCLIC (4 CYCLES)
     Route: 042
     Dates: start: 2014, end: 201506
  8. VINBLASTINE /00115802/ [Suspect]
     Active Substance: VINBLASTINE SULFATE
     Dosage: UNK, CYCLIC (4 CYCLES)
     Route: 042
     Dates: start: 2014, end: 201506
  9. LOVENOX [Concomitant]
     Active Substance: ENOXAPARIN SODIUM
     Dosage: 4000 IU, 1X/DAY

REACTIONS (4)
  - Dyspnoea exertional [Unknown]
  - Pericardial effusion [Unknown]
  - Cardiac failure [Unknown]
  - Congestive cardiomyopathy [Unknown]

NARRATIVE: CASE EVENT DATE: 20151125
